FAERS Safety Report 9078669 (Version 1)
Quarter: 2013Q1

REPORT INFORMATION
  Report Type: Report from Study
  Country: DE (occurrence: DE)
  Receive Date: 20130130
  Receipt Date: 20130130
  Transmission Date: 20140127
  Serious: Yes (Other)
  Sender: FDA-Public Use
  Company Number: DE-ROCHE-1070994

PATIENT
  Age: 43 Year
  Sex: Male
  Weight: 100 kg

DRUGS (3)
  1. PEG-INTERFERON ALFA 2A [Suspect]
     Indication: HEPATITIS C
     Dosage: LAST DOSE PRIOR TO SAE ON 17/MAY/2012
     Route: 058
     Dates: start: 20111020, end: 20120517
  2. RIBAVIRIN [Suspect]
     Indication: HEPATITIS C
     Dosage: LAST DOSE PRIOR TO SAE ON 17/MAY/2012
     Route: 048
     Dates: start: 20111020, end: 20120518
  3. PLACEBO [Suspect]
     Indication: HEPATITIS C
     Route: 048
     Dates: start: 20111020

REACTIONS (1)
  - Schizophrenia, paranoid type [Unknown]
